FAERS Safety Report 8312121-1 (Version None)
Quarter: 2012Q2

REPORT INFORMATION
  Report Type: 
  Country: None (occurrence: None)
  Receive Date: 20120425
  Receipt Date: 20110808
  Transmission Date: 20120825
  Serious: Yes (Other)
  Sender: FDA-Public Use
  Company Number: US-TEVA-US017367

PATIENT
  Sex: Female
  Weight: 77 kg

DRUGS (14)
  1. CELEXA [Concomitant]
     Indication: DEPRESSION
     Dosage: 60 MILLIGRAM;
     Route: 048
     Dates: start: 20040101
  2. LAMISIL [Concomitant]
     Indication: ONYCHOMYCOSIS
     Dosage: 250 MILLIGRAM;
     Route: 048
     Dates: start: 20050401
  3. DEPAKOTE ER [Concomitant]
     Indication: MANIA
     Dosage: 1500 MILLIGRAM;
     Route: 048
     Dates: start: 20060301
  4. REGLAN [Concomitant]
     Indication: ABDOMINAL DISCOMFORT
     Dosage: 40 MILLIGRAM;
     Route: 048
     Dates: start: 20020101
  5. LITHIUM CARBONATE [Concomitant]
     Indication: BIPOLAR DISORDER
     Dosage: 675 MILLIGRAM;
     Route: 048
     Dates: start: 20040101
  6. ACIPHEX [Concomitant]
     Indication: GASTROOESOPHAGEAL REFLUX DISEASE
     Dosage: 20 MILLIGRAM;
     Route: 048
     Dates: start: 20040101
  7. DITROPAN XL [Concomitant]
     Indication: URINARY INCONTINENCE
     Dosage: 15 MILLIGRAM;
     Route: 048
     Dates: start: 20040101
  8. KLONOPIN [Concomitant]
     Indication: ANXIETY
     Dosage: 3 MILLIGRAM;
     Route: 048
     Dates: start: 20030101
  9. PROVIGIL [Suspect]
     Indication: FATIGUE
     Dosage: 400 MILLIGRAM;
     Route: 048
     Dates: start: 20020901, end: 20060317
  10. TRAZODONE HCL [Concomitant]
     Indication: SLEEP DISORDER
     Dosage: 200 MILLIGRAM;
     Route: 048
     Dates: start: 20020101
  11. TRAZODONE HCL [Concomitant]
     Indication: DEPRESSION
  12. ROZEREM [Concomitant]
     Indication: SLEEP DISORDER
     Dosage: 8 MILLIGRAM;
     Route: 048
     Dates: start: 20060201
  13. DURAGESIC-100 [Concomitant]
     Route: 065
  14. SENNA-S [Concomitant]
     Indication: CONSTIPATION
     Dosage: 8.6/50MG 5XD
     Route: 048
     Dates: start: 20010101

REACTIONS (4)
  - LIBIDO INCREASED [None]
  - EUPHORIC MOOD [None]
  - MANIA [None]
  - FEELING DRUNK [None]
